FAERS Safety Report 25778246 (Version 1)
Quarter: 2025Q3

REPORT INFORMATION
  Report Type: Other
  Country: EU (occurrence: EU)
  Receive Date: 20250909
  Receipt Date: 20250909
  Transmission Date: 20251021
  Serious: Yes (Hospitalization)
  Sender: ZYDUS PHARM
  Company Number: None

PATIENT

DRUGS (9)
  1. OLANZAPINE [Suspect]
     Active Substance: OLANZAPINE
     Indication: Depression
     Route: 048
     Dates: start: 20250623, end: 20250817
  2. VENLAFAXINE [Suspect]
     Active Substance: VENLAFAXINE HYDROCHLORIDE
     Indication: Depression
     Route: 048
     Dates: start: 20250623, end: 20250817
  3. CYAMEMAZINE [Suspect]
     Active Substance: CYAMEMAZINE
     Indication: Depression
     Route: 048
     Dates: start: 20250623, end: 20250817
  4. BROMAZEPAM [Concomitant]
     Active Substance: BROMAZEPAM
     Indication: Product used for unknown indication
     Route: 065
  5. LEVOTHYROXINE [Concomitant]
     Active Substance: LEVOTHYROXINE
     Indication: Product used for unknown indication
     Route: 065
  6. MAGNESIUM CARBONATE [Concomitant]
     Active Substance: MAGNESIUM CARBONATE
     Indication: Product used for unknown indication
     Route: 065
  7. ZOPICLONE [Concomitant]
     Active Substance: ZOPICLONE
     Indication: Product used for unknown indication
     Route: 065
  8. DAFALGAN [Concomitant]
     Active Substance: ACETAMINOPHEN
     Indication: Product used for unknown indication
     Route: 065
  9. CICLOPIROX OLAMINE [Concomitant]
     Active Substance: CICLOPIROX OLAMINE
     Indication: Product used for unknown indication
     Route: 065

REACTIONS (3)
  - Febrile bone marrow aplasia [Recovering/Resolving]
  - Anaemia [Recovering/Resolving]
  - Thrombocytopenia [Recovering/Resolving]

NARRATIVE: CASE EVENT DATE: 20250817
